FAERS Safety Report 7889615-6 (Version None)
Quarter: 2011Q4

REPORT INFORMATION
  Report Type: 
  Country: None (occurrence: None)
  Receive Date: 20111103
  Receipt Date: 20110825
  Transmission Date: 20120403
  Serious: No
  Sender: FDA-Public Use
  Company Number: US-BRISTOL-MYERS SQUIBB COMPANY-16003477

PATIENT
  Age: 25 Year
  Sex: Female
  Weight: 47 kg

DRUGS (7)
  1. CONCERTA [Concomitant]
     Dates: start: 20110701
  2. KENALOG-40 [Suspect]
     Indication: PRURITUS
     Dosage: 1 DOSAGE FORM: 1ML/40MG
     Route: 030
  3. NORETHINDRONE [Concomitant]
     Dosage: TABLETS
  4. KENALOG-40 [Suspect]
     Indication: DERMATITIS CONTACT
     Dosage: 1 DOSAGE FORM: 1ML/40MG
     Route: 030
  5. PROGESTERONE [Concomitant]
  6. VITAMIN TAB [Concomitant]
  7. TYLENOL-500 [Concomitant]

REACTIONS (1)
  - INJECTION SITE ATROPHY [None]
